FAERS Safety Report 9198066 (Version 1)
Quarter: 2013Q1

REPORT INFORMATION
  Report Type: Spontaneous
  Country: US (occurrence: US)
  Receive Date: 20130328
  Receipt Date: 20130328
  Transmission Date: 20140127
  Serious: Yes (Hospitalization)
  Sender: FDA-Public Use
  Company Number: US-OTSUKA-US-2013-10460

PATIENT
  Sex: Male
  Weight: 124.72 kg

DRUGS (4)
  1. SAMSCA [Suspect]
     Indication: CARDIAC FAILURE CONGESTIVE
     Dosage: ORAL TABLET DAILY
     Dates: start: 201212
  2. SAMSCA [Suspect]
     Indication: CARDIOMYOPATHY
  3. METOPROLOL [Concomitant]
  4. INSPRA [Concomitant]

REACTIONS (3)
  - Fatigue [Unknown]
  - Muscle spasms [None]
  - Fluid overload [None]
